FAERS Safety Report 16308582 (Version 1)
Quarter: 2019Q2

REPORT INFORMATION
  Report Type: Spontaneous
  Country: US (occurrence: US)
  Receive Date: 20190514
  Receipt Date: 20190514
  Transmission Date: 20190711
  Serious: No
  Sender: FDA-Public Use
  Company Number: PHEH2019US020519

PATIENT
  Sex: Male

DRUGS (1)
  1. TASIGNA [Suspect]
     Active Substance: NILOTINIB
     Indication: CHRONIC MYELOID LEUKAEMIA
     Dosage: 400 MG, BID
     Route: 048
     Dates: start: 2010

REACTIONS (24)
  - Hepatomegaly [Unknown]
  - Testicular disorder [Unknown]
  - Body fat disorder [Unknown]
  - Anaemia [Unknown]
  - Insomnia [Unknown]
  - Palpitations [Unknown]
  - Pain [Unknown]
  - Back injury [Unknown]
  - Hepatic steatosis [Unknown]
  - Cough [Unknown]
  - Malaise [Unknown]
  - Hyperlipidaemia [Unknown]
  - Cardiomegaly [Unknown]
  - Swelling [Unknown]
  - Central obesity [Unknown]
  - Chest discomfort [Unknown]
  - Dyspepsia [Unknown]
  - Obesity [Unknown]
  - Transaminases increased [Unknown]
  - Essential hypertension [Unknown]
  - Chest pain [Unknown]
  - Asthenia [Unknown]
  - Cardiac disorder [Unknown]
  - Fatigue [Unknown]
